FAERS Safety Report 4427933-4 (Version None)
Quarter: 2004Q3

REPORT INFORMATION
  Report Type: 
  Country: None (occurrence: None)
  Receive Date: 20040813
  Receipt Date: 20040806
  Transmission Date: 20050211
  Serious: Yes (Death)
  Sender: FDA-Public Use
  Company Number: 2004227087US

PATIENT
  Age: 63 Year
  Sex: Male
  Weight: 76.2 kg

DRUGS (7)
  1. CAMPTOSAR [Suspect]
     Indication: SMALL CELL LUNG CANCER STAGE UNSPECIFIED
     Dosage: 65 MG/M2, DAY1 + 8, CYCLIC, IV
     Route: 042
     Dates: start: 20030129, end: 20040521
  2. CISPLATIN [Suspect]
     Indication: SMALL CELL LUNG CANCER STAGE UNSPECIFIED
     Dosage: 30 MG/M2, DAY 1 + 8, CYCLIC, IV
     Route: 042
     Dates: start: 20030129, end: 20030521
  3. AMBIEN [Concomitant]
  4. CENTRUM SILVER (VITAMINB NOS, VITAMINS NOS, RETINOL) [Concomitant]
  5. SORBITOL [Concomitant]
  6. SENNA (SENNA) [Concomitant]
  7. FERROUS SULFATE TAB [Concomitant]

REACTIONS (1)
  - ACUTE MYELOID LEUKAEMIA [None]
